FAERS Safety Report 22304877 (Version 1)
Quarter: 2023Q2

REPORT INFORMATION
  Report Type: Spontaneous
  Country: US (occurrence: None)
  Receive Date: 20230510
  Receipt Date: 20230510
  Transmission Date: 20230722
  Serious: No
  Sender: FDA-Public Use
  Company Number: None

PATIENT

DRUGS (2)
  1. ISOFLURANE [Suspect]
     Active Substance: ISOFLURANE
  2. ISOFLURANE [Suspect]
     Active Substance: ISOFLURANE

REACTIONS (1)
  - Product label on wrong product [None]
